FAERS Safety Report 8489664-3 (Version None)
Quarter: 2012Q3

REPORT INFORMATION
  Report Type: 
  Country: None (occurrence: None)
  Receive Date: 20120705
  Receipt Date: 20120622
  Transmission Date: 20120928
  Serious: Yes (Hospitalization)
  Sender: FDA-Public Use
  Company Number: US-GLAXOSMITHKLINE-A0788541A

PATIENT
  Sex: Male
  Weight: 104.5 kg

DRUGS (6)
  1. AVANDIA [Suspect]
     Indication: TYPE 2 DIABETES MELLITUS
     Dosage: 4MG TWICE PER DAY
     Route: 048
     Dates: start: 20030101, end: 20060101
  2. VYTORIN [Concomitant]
  3. LISINOPRIL [Concomitant]
  4. SINGULAIR [Concomitant]
  5. COLCHICINE [Concomitant]
  6. ACIPHEX [Concomitant]

REACTIONS (3)
  - DYSPNOEA [None]
  - CORONARY ARTERY DISEASE [None]
  - ANGINA PECTORIS [None]
